FAERS Safety Report 6509339-7 (Version None)
Quarter: 2009Q4

REPORT INFORMATION
  Report Type: 
  Country: None (occurrence: None)
  Receive Date: 20091218
  Receipt Date: 20091218
  Transmission Date: 20100525
  Serious: Yes (Other)
  Sender: FDA-Public Use
  Company Number: None

PATIENT
  Age: 19 Year
  Sex: Female
  Weight: 88.4514 kg

DRUGS (1)
  1. TRAZODONE HCL [Suspect]
     Dosage: PO
     Route: 048
     Dates: start: 20091215, end: 20091215

REACTIONS (10)
  - CHILLS [None]
  - DIARRHOEA [None]
  - DRUG TOXICITY [None]
  - MUSCULOSKELETAL STIFFNESS [None]
  - MYALGIA [None]
  - PAIN IN EXTREMITY [None]
  - PYREXIA [None]
  - RENAL DISORDER [None]
  - TERMINAL INSOMNIA [None]
  - VOMITING [None]
